FAERS Safety Report 10961592 (Version 1)
Quarter: 2015Q1

REPORT INFORMATION
  Report Type: Spontaneous
  Country: JP (occurrence: None)
  Receive Date: 20150325
  Receipt Date: 20150325
  Transmission Date: 20150721
  Serious: Yes (Other)
  Sender: FDA-Public Use
  Company Number: FK201501376

PATIENT
  Age: 52 Year
  Sex: Female

DRUGS (4)
  1. CARBOPLATIN (MANUFACTURER UNKNOWN) (CARBOPLATIN) (CARBOPLATIN) [Suspect]
     Active Substance: CARBOPLATIN
     Indication: PINEAL PARENCHYMAL NEOPLASM MALIGNANT
     Dosage: 110 MG/M2, 6 COURSES?
  2. NIMUSTINE (NIMUSTINE) (NIMUSTINE) [Suspect]
     Active Substance: NIMUSTINE
     Indication: PINEAL PARENCHYMAL NEOPLASM MALIGNANT
     Dosage: 60 MG/M2, 6 COURSES?
  3. VINCRISTINE (VINCRISTINE) (VINCRISTINE) [Suspect]
     Active Substance: VINCRISTINE
     Indication: PINEAL PARENCHYMAL NEOPLASM MALIGNANT
     Dosage: 0.6 MG/M2, 6 COURSES (ON DAY 8 AND DAY 15)??
  4. INTERFERON B (INTERFERON BETA) (INTERFERON BETA) [Suspect]
     Active Substance: INTERFERON BETA
     Indication: PINEAL PARENCHYMAL NEOPLASM MALIGNANT
     Dosage: 3 X 106 IU ON DAY, 1, 8 AND 15?

REACTIONS (5)
  - Cerebral disorder [None]
  - Nervous system disorder [None]
  - Hypothyroidism [None]
  - Cognitive disorder [None]
  - Growth hormone deficiency [None]
